FAERS Safety Report 15597242 (Version 1)
Quarter: 2018Q4

REPORT INFORMATION
  Report Type: Spontaneous
  Country: US (occurrence: US)
  Receive Date: 20181107
  Receipt Date: 20181107
  Transmission Date: 20190205
  Serious: No
  Sender: FDA-Public Use
  Company Number: None

PATIENT
  Sex: Female
  Weight: 74.25 kg

DRUGS (11)
  1. TOPAMAX [Concomitant]
     Active Substance: TOPIRAMATE
  2. OCEAN SALINE NASAL SPRAY [Suspect]
     Active Substance: SODIUM CHLORIDE
     Indication: MUCOSAL EROSION
     Dosage: ?          OTHER ROUTE:SPRAYED IN THE NOSTRILS?
  3. TRAMADOL. [Concomitant]
     Active Substance: TRAMADOL
  4. MELATONIN [Concomitant]
     Active Substance: MELATONIN
  5. OCEAN SALINE NASAL SPRAY [Suspect]
     Active Substance: SODIUM CHLORIDE
     Indication: DRY SKIN
     Dosage: ?          OTHER ROUTE:SPRAYED IN THE NOSTRILS?
  6. IMITREX [Concomitant]
     Active Substance: SUMATRIPTAN SUCCINATE
  7. LAMICTAL [Concomitant]
     Active Substance: LAMOTRIGINE
  8. ABILIFY [Concomitant]
     Active Substance: ARIPIPRAZOLE
  9. VISTARIL [Concomitant]
     Active Substance: HYDROXYZINE PAMOATE
  10. NEXIUM SONATA [Concomitant]
  11. CYMBALTA [Concomitant]
     Active Substance: DULOXETINE HYDROCHLORIDE

REACTIONS (3)
  - Condition aggravated [None]
  - Nasal crusting [None]
  - Nasal discomfort [None]
